FAERS Safety Report 8912314 (Version 2)
Quarter: 2012Q4

REPORT INFORMATION
  Report Type: 
  Country: US (occurrence: US)
  Receive Date: 20121115
  Receipt Date: 20121120
  Transmission Date: 20130627
  Serious: No
  Sender: FDA-Public Use
  Company Number: US-009507513-1210USA004658

PATIENT
  Age: 50 Year
  Sex: Male
  Weight: 92.97 kg

DRUGS (1)
  1. CLARITIN [Suspect]
     Indication: SEASONAL ALLERGY
     Dosage: 10 mg, Once
     Route: 048
     Dates: start: 20120821

REACTIONS (1)
  - Drug ineffective [Unknown]
